FAERS Safety Report 13724694 (Version 3)
Quarter: 2019Q4

REPORT INFORMATION
  Report Type: Spontaneous
  Country: US (occurrence: US)
  Receive Date: 20170706
  Receipt Date: 20191107
  Transmission Date: 20200122
  Serious: Yes (Hospitalization, Other)
  Sender: FDA-Public Use
  Company Number: US-PFIZER INC-2017293921

PATIENT
  Age: 55 Year
  Sex: Male

DRUGS (6)
  1. VIAGRA [Suspect]
     Active Substance: SILDENAFIL CITRATE
     Indication: ERECTILE DYSFUNCTION
     Dosage: 25 MG, TWICE WEEKLY
     Route: 048
     Dates: start: 20140221, end: 20140221
  2. LIQUID NITROGEN [Concomitant]
     Active Substance: NITROGEN
     Indication: MOLE EXCISION
  3. VIAGRA [Suspect]
     Active Substance: SILDENAFIL CITRATE
     Dosage: 100 MG, TWICE DAILY
     Route: 048
     Dates: start: 20171128, end: 20171128
  4. LIQUID NITROGEN [Concomitant]
     Active Substance: NITROGEN
     Indication: ACTINIC KERATOSIS
     Dosage: UNK
  5. VIAGRA [Suspect]
     Active Substance: SILDENAFIL CITRATE
     Dosage: 50 MG, TWICE WEEKLY
     Route: 048
     Dates: start: 20140521, end: 20151014
  6. VIAGRA [Suspect]
     Active Substance: SILDENAFIL CITRATE
     Dosage: 100 MG, TWICE DAILY
     Route: 048
     Dates: start: 20171229, end: 20180306

REACTIONS (5)
  - Malignant melanoma [Unknown]
  - Depression [Not Recovered/Not Resolved]
  - Off label use [Unknown]
  - Malignant melanoma stage IV [Unknown]
  - Anxiety [Not Recovered/Not Resolved]

NARRATIVE: CASE EVENT DATE: 2015
